FAERS Safety Report 4519515-0 (Version None)
Quarter: 2004Q4

REPORT INFORMATION
  Report Type: 
  Country: None (occurrence: None)
  Receive Date: 20041202
  Receipt Date: 20041125
  Transmission Date: 20050328
  Serious: Yes (Other)
  Sender: FDA-Public Use
  Company Number: 2003-08-0343

PATIENT
  Age: 57 Year
  Sex: Male

DRUGS (1)
  1. INTRON A [Suspect]
     Indication: HEPATITIS C
     Dosage: 10 MU QD INTRAMUSCULAR
     Route: 030
     Dates: start: 20030714, end: 20030726

REACTIONS (1)
  - CEREBRAL THROMBOSIS [None]
